FAERS Safety Report 5469998-7 (Version None)
Quarter: 2007Q3

REPORT INFORMATION
  Report Type: 
  Country: None (occurrence: None)
  Receive Date: 20070927
  Receipt Date: 20061129
  Transmission Date: 20080115
  Serious: No
  Sender: FDA-Public Use
  Company Number: US-AMGEN-KDL195178

PATIENT
  Sex: Male
  Weight: 92.6 kg

DRUGS (17)
  1. NEUPOGEN [Suspect]
     Indication: CHEMOTHERAPY
     Route: 058
     Dates: start: 20060814
  2. ECOTRIN [Concomitant]
     Route: 065
  3. ZOCOR [Concomitant]
     Route: 065
  4. EZETIMIBE [Concomitant]
     Route: 065
  5. DILTIAZEM [Concomitant]
     Route: 065
  6. PLAVIX [Concomitant]
     Route: 065
  7. GLIPIZIDE [Concomitant]
     Route: 065
  8. AVANDIA [Concomitant]
     Route: 065
  9. VITAMINS [Concomitant]
     Route: 065
  10. METOPROLOL SUCCINATE [Concomitant]
     Route: 065
  11. GABAPENTIN [Concomitant]
     Route: 065
  12. LASIX [Concomitant]
     Route: 065
  13. HYDROCODONE BITARTRATE [Concomitant]
     Route: 065
  14. IFOSFAMIDE [Concomitant]
     Route: 065
  15. ETOPOSIDE [Concomitant]
     Route: 065
  16. MESNA [Concomitant]
     Route: 065
  17. CARBOPLATIN [Concomitant]
     Route: 065

REACTIONS (5)
  - ARTHRALGIA [None]
  - CHEST PAIN [None]
  - MYALGIA [None]
  - PAINFUL RESPIRATION [None]
  - TACHYCARDIA [None]
